FAERS Safety Report 16153749 (Version 4)
Quarter: 2019Q3

REPORT INFORMATION
  Report Type: Spontaneous
  Country: US (occurrence: US)
  Receive Date: 20190403
  Receipt Date: 20190903
  Transmission Date: 20191004
  Serious: Yes (Other)
  Sender: FDA-Public Use
  Company Number: US-PFIZER INC-2019133273

PATIENT
  Age: 74 Year
  Sex: Male

DRUGS (9)
  1. METOPROLOL. [Concomitant]
     Active Substance: METOPROLOL
     Dosage: UNK
     Dates: start: 201904
  2. ATORVASTATIN [Concomitant]
     Active Substance: ATORVASTATIN
     Dosage: UNK
     Dates: start: 201904
  3. FINASTERIDE. [Concomitant]
     Active Substance: FINASTERIDE
     Indication: PROSTATIC ATROPHY
     Dosage: 5 MG, 1X/DAY
     Dates: start: 2018
  4. WARFARIN [Concomitant]
     Active Substance: WARFARIN
     Dosage: UNK
     Dates: start: 201904
  5. ASPIRIN [ACETYLSALICYLIC ACID] [Concomitant]
     Active Substance: ASPIRIN
     Dosage: 81 MG, UNK
     Dates: start: 2012
  6. TAMSULOSIN [Interacting]
     Active Substance: TAMSULOSIN
     Dosage: 0.8 MG, 1X/DAY
     Dates: start: 2017
  7. ADVIL [Suspect]
     Active Substance: IBUPROFEN
     Dosage: 200 MG, ALTERNATE DAY (ONE ADVIL EVERY OTHER DAY 200 MG)
     Dates: start: 201811, end: 201904
  8. TAMSULOSIN [Interacting]
     Active Substance: TAMSULOSIN
     Dosage: 0.8 MG, 1X/DAY
     Dates: start: 2018
  9. TAMSULOSIN [Interacting]
     Active Substance: TAMSULOSIN
     Indication: MICTURITION URGENCY
     Dosage: 4 MG, 2X/DAY
     Route: 048
     Dates: start: 2017

REACTIONS (6)
  - Potentiating drug interaction [Not Recovered/Not Resolved]
  - Therapeutic response unexpected [Unknown]
  - Condition aggravated [Unknown]
  - Arterial occlusive disease [Recovering/Resolving]
  - Aortic valve incompetence [Recovering/Resolving]
  - Pre-existing condition improved [Unknown]

NARRATIVE: CASE EVENT DATE: 201901
